FAERS Safety Report 8793427 (Version 1)
Quarter: 2012Q4

REPORT INFORMATION
  Report Type: 
  Country: US (occurrence: US)
  Receive Date: 20120917
  Receipt Date: 20120917
  Transmission Date: 20130627
  Serious: Yes (Hospitalization)
  Sender: FDA-Public Use
  Company Number: US-BAYER-2012-093829

PATIENT
  Age: 40 Year
  Sex: Female

DRUGS (2)
  1. MIRENA [Suspect]
     Indication: MENORRHAGIA
     Dosage: 20 mcg/24hr, CONT
     Route: 015
     Dates: start: 20120606, end: 2012
  2. MIRENA [Suspect]
     Indication: ENDOMETRIOSIS

REACTIONS (4)
  - Pelvic infection [None]
  - Pelvic pain [None]
  - Urinary tract infection [None]
  - Device dislocation [None]
